FAERS Safety Report 14191739 (Version 2)
Quarter: 2017Q4

REPORT INFORMATION
  Report Type: Report from Study
  Country: CA (occurrence: CA)
  Receive Date: 20171115
  Receipt Date: 20171123
  Transmission Date: 20180321
  Serious: Yes (Other)
  Sender: FDA-Public Use
  Company Number: CA-AMGEN-CANSL2017170439

PATIENT
  Age: 66 Year
  Sex: Female

DRUGS (11)
  1. L-THYROXINE [Concomitant]
     Active Substance: LEVOTHYROXINE
     Dosage: 100 MUG, QD
  2. PROBIOTIC [Concomitant]
     Active Substance: PROBIOTICS NOS
  3. LEUCOVORIN. [Concomitant]
     Active Substance: LEUCOVORIN
     Dosage: 5 MG, QWK
  4. VITAMIN B12 [Concomitant]
     Active Substance: CYANOCOBALAMIN
     Dosage: UNK UNK, QD
  5. ENBREL [Suspect]
     Active Substance: ETANERCEPT
     Indication: RHEUMATOID ARTHRITIS
     Dosage: 50 MG, UNK
     Route: 065
     Dates: start: 20160627
  6. COD-LIVER OIL [Concomitant]
     Active Substance: FISH OIL
  7. PREDNISONE. [Suspect]
     Active Substance: PREDNISONE
     Indication: RHEUMATOID ARTHRITIS
     Dosage: UNK
     Route: 065
  8. L LYSINE [Concomitant]
     Dosage: 500 MG, QD
  9. CALCIUM [Concomitant]
     Active Substance: CALCIUM
     Dosage: UNK
  10. MTX [Suspect]
     Active Substance: METHOTREXATE SODIUM
     Indication: RHEUMATOID ARTHRITIS
     Dosage: 22.5 MG, QWK
     Route: 065
  11. HALIBUT-LIVER OIL [Concomitant]

REACTIONS (8)
  - Mesenteric neoplasm [Unknown]
  - Colectomy [Unknown]
  - Muscle enzyme decreased [Unknown]
  - Arthralgia [Unknown]
  - Carbohydrate antigen 125 increased [Unknown]
  - Blood creatine phosphokinase decreased [Unknown]
  - Musculoskeletal disorder [Not Recovered/Not Resolved]
  - Platelet count increased [Unknown]

NARRATIVE: CASE EVENT DATE: 2017
